FAERS Safety Report 22862073 (Version 2)
Quarter: 2023Q4

REPORT INFORMATION
  Report Type: Report from Study
  Country: US (occurrence: US)
  Receive Date: 20230824
  Receipt Date: 20231012
  Transmission Date: 20240109
  Serious: Yes (Death, Hospitalization, Other)
  Sender: FDA-Public Use
  Company Number: US-PFIZER INC-PV202300106929

PATIENT
  Age: 55 Year
  Sex: Female

DRUGS (10)
  1. DOXYCYCLINE HYCLATE [Suspect]
     Active Substance: DOXYCYCLINE HYCLATE
     Indication: Lyme disease
     Dosage: UNK
  2. INGREZZA [Suspect]
     Active Substance: VALBENAZINE
     Indication: Tardive dyskinesia
     Dosage: 40 MG, DAILY
     Route: 048
     Dates: start: 20211028, end: 20230605
  3. INGREZZA [Suspect]
     Active Substance: VALBENAZINE
     Dosage: 40 MG, DAILY
     Route: 048
     Dates: start: 20221008
  4. INGREZZA [Suspect]
     Active Substance: VALBENAZINE
     Dosage: 40 MG, DAILY
     Route: 048
  5. CHLORPROMAZINE [Concomitant]
     Active Substance: CHLORPROMAZINE
     Indication: Bipolar disorder
     Dosage: UNK
     Dates: start: 20190404
  6. CLONAZEPAM [Concomitant]
     Active Substance: CLONAZEPAM
     Indication: Anxiety
     Dosage: UNK
  7. GABAPENTIN [Concomitant]
     Active Substance: GABAPENTIN
     Indication: Restless legs syndrome
     Dosage: UNK
     Dates: start: 20171222
  8. LURASIDONE [Concomitant]
     Active Substance: LURASIDONE
     Indication: Bipolar disorder
     Dosage: UNK
     Dates: start: 20180329
  9. TOPIRAMATE [Concomitant]
     Active Substance: TOPIRAMATE
     Indication: Migraine prophylaxis
     Dosage: UNK
  10. ALPRAZOLAM [Concomitant]
     Active Substance: ALPRAZOLAM
     Dosage: UNK

REACTIONS (3)
  - Death [Fatal]
  - Pancreatitis acute [Recovered/Resolved]
  - Off label use [Unknown]

NARRATIVE: CASE EVENT DATE: 20221030
